FAERS Safety Report 21337653 (Version 1)
Quarter: 2022Q3

REPORT INFORMATION
  Report Type: Spontaneous
  Country: US (occurrence: US)
  Receive Date: 20220915
  Receipt Date: 20220915
  Transmission Date: 20221027
  Serious: No
  Sender: FDA-Public Use
  Company Number: US-ELI_LILLY_AND_COMPANY-US202209006862

PATIENT
  Sex: Female

DRUGS (2)
  1. HUMULIN N [Suspect]
     Active Substance: INSULIN HUMAN
     Indication: Type 2 diabetes mellitus
     Dosage: 16 U, BID
     Route: 058
     Dates: start: 20220806
  2. HUMULIN N [Suspect]
     Active Substance: INSULIN HUMAN
     Dosage: 16 U, BID
     Route: 058
     Dates: start: 20220825

REACTIONS (2)
  - Visual impairment [Not Recovered/Not Resolved]
  - Incorrect product administration duration [Not Recovered/Not Resolved]
